FAERS Safety Report 8761880 (Version 1)
Quarter: 2012Q4

REPORT INFORMATION
  Report Type: 
  Country: DK (occurrence: GB)
  Receive Date: 20120830
  Receipt Date: 20120830
  Transmission Date: 20130627
  Serious: Yes (Other)
  Sender: FDA-Public Use
  Company Number: GB-FRI-1000038248

PATIENT
  Age: 41 Year
  Sex: Female
  Weight: 57.15 kg

DRUGS (4)
  1. CITALOPRAM [Suspect]
     Indication: ANXIETY
     Dosage: 20 mg
     Route: 048
     Dates: start: 20111109, end: 20111130
  2. CITALOPRAM [Suspect]
     Indication: GENERALISED ANXIETY DISORDER
  3. ESCITALOPRAM [Concomitant]
     Indication: ANXIETY
     Dosage: 10 mg
     Route: 048
  4. ESCITALOPRAM [Concomitant]
     Indication: GENERALISED ANXIETY DISORDER

REACTIONS (3)
  - Hypotension [Recovered/Resolved]
  - Mental impairment [Recovered/Resolved]
  - Dizziness [Recovered/Resolved]
